FAERS Safety Report 4487015-2 (Version None)
Quarter: 2004Q3

REPORT INFORMATION
  Report Type: 
  Country: None (occurrence: None)
  Receive Date: 20040921
  Receipt Date: 20040408
  Transmission Date: 20050211
  Serious: Yes (Other)
  Sender: FDA-Public Use
  Company Number: 163-20785-04040211 (0)

PATIENT
  Age: 58 Year
  Sex: Male
  Weight: 61 kg

DRUGS (10)
  1. THALOMID [Suspect]
     Indication: MULTIPLE MYELOMA
     Dosage: 400 MG, DAILY, ORAL
     Route: 048
     Dates: start: 20031031, end: 20031117
  2. VINCRISTINE [Suspect]
     Indication: MULTIPLE MYELOMA
     Dosage: 0.5 MG, DAILY, INTRAVENOUS
     Route: 042
     Dates: start: 20031031, end: 20031103
  3. ADRIAMYCIN PFS [Suspect]
     Indication: MULTIPLE MYELOMA
     Dosage: 16 MG, DAILY, INTRAVENOUS
     Route: 042
     Dates: start: 20031031, end: 20031103
  4. DEXAMETHASONE [Suspect]
     Indication: MULTIPLE MYELOMA
     Dosage: 40 MG, DAILY, ORAL
     Route: 048
     Dates: start: 20031031, end: 20031103
  5. OXYCONTIN [Concomitant]
  6. OXYCODONE HCL [Concomitant]
  7. COLACE (DOCUSATE SODIUM) [Concomitant]
  8. PROCRIT [Concomitant]
  9. AREDIA [Concomitant]
  10. FOLIC ACID [Concomitant]

REACTIONS (2)
  - DEEP VEIN THROMBOSIS [None]
  - SWELLING [None]
